FAERS Safety Report 11216839 (Version 1)
Quarter: 2015Q2

REPORT INFORMATION
  Report Type: Spontaneous
  Country: US (occurrence: None)
  Receive Date: 20150623
  Receipt Date: 20150623
  Transmission Date: 20150821
  Serious: Yes (Disabling)
  Sender: FDA-Public Use
  Company Number: None

PATIENT
  Age: 57 Year
  Sex: Female

DRUGS (1)
  1. MORPHINE SULFATE. [Suspect]
     Active Substance: MORPHINE SULFATE
     Indication: PAIN
     Route: 048
     Dates: start: 20150618, end: 20150619

REACTIONS (11)
  - Product substitution issue [None]
  - Rash [None]
  - Product quality issue [None]
  - Speech disorder [None]
  - Pruritus generalised [None]
  - Feeling abnormal [None]
  - Psychomotor hyperactivity [None]
  - Thinking abnormal [None]
  - Agitation [None]
  - Dyspnoea [None]
  - Hiccups [None]

NARRATIVE: CASE EVENT DATE: 20150618
